FAERS Safety Report 6243407-2 (Version None)
Quarter: 2009Q2

REPORT INFORMATION
  Report Type: 
  Country: None (occurrence: None)
  Receive Date: 20090622
  Receipt Date: 20090604
  Transmission Date: 20091009
  Serious: Yes (Hospitalization)
  Sender: FDA-Public Use
  Company Number: 8047513

PATIENT
  Age: 13 Year
  Sex: Male
  Weight: 54 kg

DRUGS (5)
  1. XYZAL [Suspect]
     Indication: HYPERSENSITIVITY
     Dosage: 5 MG 1/D PO
     Route: 048
     Dates: start: 20060101, end: 20090101
  2. SYMBICORT [Concomitant]
  3. NASONEX [Concomitant]
  4. PONSTAN [Concomitant]
  5. DAFALGAN /00020001/ [Concomitant]

REACTIONS (1)
  - NEPHROLITHIASIS [None]
